FAERS Safety Report 11247451 (Version 1)
Quarter: 2015Q3

REPORT INFORMATION
  Report Type: Report from Study
  Country: US (occurrence: US)
  Receive Date: 20150708
  Receipt Date: 20150708
  Transmission Date: 20151125
  Serious: Yes (Other)
  Sender: FDA-Public Use
  Company Number: US-JNJFOC-20141017816

PATIENT
  Age: 36 Year
  Sex: Female
  Weight: 90.72 kg

DRUGS (4)
  1. STELARA [Suspect]
     Active Substance: USTEKINUMAB
     Indication: PSORIASIS
     Route: 058
     Dates: start: 20130327, end: 20130822
  2. TYLENOL [Suspect]
     Active Substance: ACETAMINOPHEN
     Indication: HEADACHE
     Route: 048
     Dates: start: 20130327, end: 20131231
  3. DOCOSAHEXAENOIC ACID [Suspect]
     Active Substance: DOCONEXENT
     Indication: VITAMIN SUPPLEMENTATION
     Route: 065
     Dates: start: 20130430, end: 20131231
  4. CLARITIN-D 12 HOUR [Suspect]
     Active Substance: LORATADINE\PSEUDOEPHEDRINE SULFATE
     Indication: NASOPHARYNGITIS
     Route: 048
     Dates: start: 20131101, end: 20131130

REACTIONS (5)
  - Dental caries [Unknown]
  - Nasopharyngitis [Unknown]
  - Headache [Unknown]
  - Exposure during pregnancy [Recovered/Resolved]
  - Hepatic enzyme increased [Unknown]

NARRATIVE: CASE EVENT DATE: 20130327
